FAERS Safety Report 19709157 (Version 1)
Quarter: 2021Q3

REPORT INFORMATION
  Report Type: Spontaneous
  Country: FR (occurrence: FR)
  Receive Date: 20210817
  Receipt Date: 20210817
  Transmission Date: 20211014
  Serious: Yes (Other)
  Sender: FDA-Public Use
  Company Number: FR-PFIZER INC-202101013202

PATIENT
  Age: 56 Year
  Sex: Female

DRUGS (28)
  1. VENLAFAXINE HCL [Suspect]
     Active Substance: VENLAFAXINE HYDROCHLORIDE
     Indication: HEADACHE
     Dosage: UNK
  2. ANDROCUR [Suspect]
     Active Substance: CYPROTERONE ACETATE
     Indication: HIRSUTISM
  3. NOCERTONE [Suspect]
     Active Substance: OXETORONE
     Dosage: UNK
  4. LUTERAN [Suspect]
     Active Substance: CHLORMADINONE ACETATE
     Indication: MIGRAINE
     Dosage: UNK
     Dates: start: 20011105, end: 200211
  5. LUTENYL [Suspect]
     Active Substance: NOMEGESTROL ACETATE
     Indication: MIGRAINE
     Dosage: UNK
  6. VENTOLINE [SALBUTAMOL] [Suspect]
     Active Substance: ALBUTEROL SULFATE
     Dosage: UNK
  7. LAROXYL [Suspect]
     Active Substance: AMITRIPTYLINE HYDROCHLORIDE
     Indication: HEADACHE
     Dosage: UNK
  8. LUTERAN [Suspect]
     Active Substance: CHLORMADINONE ACETATE
     Dosage: UNK
     Dates: start: 2017, end: 2019
  9. VENTOLINE [SALBUTAMOL] [Suspect]
     Active Substance: ALBUTEROL SULFATE
     Dosage: UNK
  10. DIANE (CYPROTERONE ACETATE\ETHINYL ESTRADIOL) [Suspect]
     Active Substance: CYPROTERONE ACETATE\ETHINYL ESTRADIOL
     Indication: MIGRAINE
  11. LEXOMIL [Suspect]
     Active Substance: BROMAZEPAM
     Dosage: UNK
  12. LUTENYL [Suspect]
     Active Substance: NOMEGESTROL ACETATE
     Indication: HAEMORRHAGE
     Dosage: UNK
     Dates: start: 2002, end: 2011
  13. SINGULAIR [Suspect]
     Active Substance: MONTELUKAST SODIUM
     Dosage: UNK
     Route: 065
  14. SEROPLEX [Suspect]
     Active Substance: ESCITALOPRAM OXALATE
     Dosage: UNK
     Route: 065
  15. CHRONO?INDOCID [Suspect]
     Active Substance: INDOMETHACIN
     Indication: HEADACHE
     Dosage: UNK
  16. SINGULAIR [Suspect]
     Active Substance: MONTELUKAST SODIUM
     Dosage: UNK
  17. ALMOGRAN [Suspect]
     Active Substance: ALMOTRIPTAN MALATE
     Indication: HEADACHE
     Dosage: UNK
  18. ANDROCUR [Suspect]
     Active Substance: CYPROTERONE ACETATE
     Indication: HIRSUTISM
     Dosage: UNK
     Dates: start: 201105, end: 201506
  19. MIGPRIV [Suspect]
     Active Substance: ASPIRIN LYSINE\METOCLOPRAMIDE HYDROCHLORIDE
     Indication: HEADACHE
     Dosage: UNK
  20. LEXOMIL [Suspect]
     Active Substance: BROMAZEPAM
     Dosage: UNK
  21. NOCERTONE [Suspect]
     Active Substance: OXETORONE
     Indication: HEADACHE
     Dosage: UNK
  22. MEDROL [Suspect]
     Active Substance: METHYLPREDNISOLONE
     Dosage: UNK
  23. DIANE (CYPROTERONE ACETATE\ETHINYL ESTRADIOL) [Suspect]
     Active Substance: CYPROTERONE ACETATE\ETHINYL ESTRADIOL
     Indication: HAEMORRHAGE
     Dosage: UNK
     Dates: start: 1999, end: 2001
  24. SEROPLEX [Suspect]
     Active Substance: ESCITALOPRAM OXALATE
     Dosage: UNK
  25. MIGPRIV [Suspect]
     Active Substance: ASPIRIN LYSINE\METOCLOPRAMIDE HYDROCHLORIDE
     Dosage: UNK
  26. KEPPRA [Suspect]
     Active Substance: LEVETIRACETAM
     Dosage: UNK
  27. KEPPRA [Suspect]
     Active Substance: LEVETIRACETAM
     Dosage: UNK
  28. CHRONO?INDOCID [Suspect]
     Active Substance: INDOMETHACIN
     Dosage: UNK

REACTIONS (30)
  - Amnesia [Unknown]
  - Gait disturbance [Unknown]
  - Pain [Unknown]
  - Hypocalcaemia [Unknown]
  - Condition aggravated [Unknown]
  - Hyperaesthesia [Unknown]
  - Tremor [Unknown]
  - Dizziness [Unknown]
  - Eyelid ptosis [Unknown]
  - Nausea [Unknown]
  - Photophobia [Unknown]
  - Meningioma [Unknown]
  - Exophthalmos [Unknown]
  - Paraesthesia [Unknown]
  - Coordination abnormal [Unknown]
  - Visual impairment [Unknown]
  - Heterophoria [Unknown]
  - Eye pain [Unknown]
  - Ligament sprain [Unknown]
  - Headache [Unknown]
  - Somnolence [Unknown]
  - Asthenia [Unknown]
  - Hypoaesthesia eye [Unknown]
  - Diplopia [Unknown]
  - Dyscalculia [Unknown]
  - Headache [Unknown]
  - Pupils unequal [Unknown]
  - Impaired quality of life [Unknown]
  - Discomfort [Unknown]
  - Mydriasis [Unknown]

NARRATIVE: CASE EVENT DATE: 20150627
